FAERS Safety Report 4371196-5 (Version None)
Quarter: 2004Q2

REPORT INFORMATION
  Report Type: 
  Country: None (occurrence: None)
  Receive Date: 20040604
  Receipt Date: 20040311
  Transmission Date: 20050107
  Serious: Yes (Hospitalization)
  Sender: FDA-Public Use
  Company Number: JP-GLAXOSMITHKLINE-B0326439A

PATIENT
  Age: 24 Year
  Sex: Male
  Weight: 68 kg

DRUGS (7)
  1. FLUTIDE DISKUS [Suspect]
     Indication: ASTHMA
     Dosage: 200MG TWICE PER DAY
     Route: 055
     Dates: start: 20011228, end: 20030527
  2. THEOPHYLLINE [Concomitant]
     Route: 048
  3. CLENBUTEROL HYDROCHLORIDE [Concomitant]
     Route: 048
  4. FAROPENEM SODIUM [Concomitant]
  5. CLARITHROMYCIN [Concomitant]
     Route: 048
  6. CEFTRIAXONE SODIUM [Concomitant]
     Route: 065
  7. FLOMOXEF SODIUM [Concomitant]
     Route: 065

REACTIONS (8)
  - ASTHMA [None]
  - C-REACTIVE PROTEIN INCREASED [None]
  - PHARYNGEAL ERYTHEMA [None]
  - PHARYNGOLARYNGEAL PAIN [None]
  - PNEUMONIA PRIMARY ATYPICAL [None]
  - PRODUCTIVE COUGH [None]
  - PYREXIA [None]
  - WHITE BLOOD CELL COUNT INCREASED [None]
